FAERS Safety Report 7850940-6 (Version None)
Quarter: 2011Q4

REPORT INFORMATION
  Report Type: 
  Country: None (occurrence: None)
  Receive Date: 20111021
  Receipt Date: 20111011
  Transmission Date: 20120403
  Serious: Yes (Life-Threatening)
  Sender: FDA-Public Use
  Company Number: 1072414

PATIENT
  Age: 66 Year
  Sex: Female
  Weight: 89 kg

DRUGS (8)
  1. ALENDRONATE SODIUM [Concomitant]
  2. METHOTREXATE [Suspect]
     Indication: RHEUMATOID ARTHRITIS
     Dates: end: 20081002
  3. SIMVASTATIN [Concomitant]
  4. OMEPRAZOLE [Concomitant]
  5. ENBREL [Suspect]
     Indication: RHEUMATOID ARTHRITIS
     Dosage: 50 MG MILLIGRAM (S), SUBCUTANEOUS
     Route: 058
     Dates: end: 20110920
  6. ALENDRONATE SODIUM [Concomitant]
  7. LOSARTAN POTASSIUM [Concomitant]
  8. PREDNISOLONE [Concomitant]

REACTIONS (2)
  - PANCREATIC CARCINOMA METASTATIC [None]
  - LYMPHOMA [None]
